FAERS Safety Report 23405433 (Version 1)
Quarter: 2024Q1

REPORT INFORMATION
  Report Type: Spontaneous
  Country: AT (occurrence: None)
  Receive Date: 20240116
  Receipt Date: 20240116
  Transmission Date: 20240410
  Serious: Yes (Hospitalization, Other)
  Sender: FDA-Public Use
  Company Number: 2024A004861

PATIENT
  Age: 28 Year
  Sex: Male

DRUGS (17)
  1. QUETIAPINE [Interacting]
     Active Substance: QUETIAPINE
     Indication: Obsessive-compulsive disorder
     Dosage: 200 MG/D EXTENDED RELEASE
     Route: 048
  2. QUETIAPINE [Interacting]
     Active Substance: QUETIAPINE
     Indication: Depression
     Dosage: 200 MG/D EXTENDED RELEASE
     Route: 048
  3. QUETIAPINE [Interacting]
     Active Substance: QUETIAPINE
     Indication: Obsessive-compulsive disorder
     Dosage: 150 MG/D
     Route: 048
  4. QUETIAPINE [Interacting]
     Active Substance: QUETIAPINE
     Indication: Depression
     Dosage: 150 MG/D
     Route: 048
  5. QUETIAPINE [Interacting]
     Active Substance: QUETIAPINE
     Indication: Obsessive-compulsive disorder
     Dosage: QUETIAPINE AND QUETIAPINE EXTENDED RELEASE WERE INCREASED IN THE COURSE OF TREATMENT TO A MAXIMUM...
     Route: 048
  6. QUETIAPINE [Interacting]
     Active Substance: QUETIAPINE
     Indication: Depression
     Dosage: QUETIAPINE AND QUETIAPINE EXTENDED RELEASE WERE INCREASED IN THE COURSE OF TREATMENT TO A MAXIMUM...
     Route: 048
  7. QUETIAPINE [Interacting]
     Active Substance: QUETIAPINE
     Indication: Obsessive-compulsive disorder
     Dosage: QUETIAPINE AND QUETIAPINE EXTENDED RELEASE WERE INCREASED IN THE COURSE OF TREATMENT TO A MAXIMUM...
     Route: 048
  8. QUETIAPINE [Interacting]
     Active Substance: QUETIAPINE
     Indication: Depression
     Dosage: QUETIAPINE AND QUETIAPINE EXTENDED RELEASE WERE INCREASED IN THE COURSE OF TREATMENT TO A MAXIMUM...
     Route: 048
  9. RISPERIDONE [Interacting]
     Active Substance: RISPERIDONE
     Indication: Obsessive-compulsive disorder
  10. RISPERIDONE [Interacting]
     Active Substance: RISPERIDONE
     Indication: Depression
  11. SERTRALINE [Suspect]
     Active Substance: SERTRALINE HYDROCHLORIDE
     Indication: Obsessive-compulsive disorder
  12. SERTRALINE [Suspect]
     Active Substance: SERTRALINE HYDROCHLORIDE
     Indication: Depression
  13. SERTRALINE [Suspect]
     Active Substance: SERTRALINE HYDROCHLORIDE
     Indication: Obsessive-compulsive disorder
  14. SERTRALINE [Suspect]
     Active Substance: SERTRALINE HYDROCHLORIDE
     Indication: Depression
  15. BUPROPION [Suspect]
     Active Substance: BUPROPION
     Indication: Depressive symptom
     Dosage: 150 MG/D EXTENDED RELEASE
  16. CLOMIPRAMINE [Concomitant]
     Active Substance: CLOMIPRAMINE
     Indication: Obsessive-compulsive symptom
  17. CLOMIPRAMINE [Concomitant]
     Active Substance: CLOMIPRAMINE
     Indication: Depressive symptom

REACTIONS (8)
  - Myoclonus [Recovered/Resolved]
  - Tremor [Recovered/Resolved]
  - Muscle rigidity [Recovered/Resolved]
  - Hyperreflexia [Recovered/Resolved]
  - Serotonin syndrome [Recovered/Resolved]
  - Seizure [Recovered/Resolved]
  - Nervousness [Recovered/Resolved]
  - Drug ineffective [Unknown]
